FAERS Safety Report 6219249-0 (Version None)
Quarter: 2009Q2

REPORT INFORMATION
  Report Type: 
  Country: None (occurrence: None)
  Receive Date: 20090609
  Receipt Date: 20090526
  Transmission Date: 20091009
  Serious: Yes (Hospitalization, Other)
  Sender: FDA-Public Use
  Company Number: US-ROCHE-630636

PATIENT
  Sex: Male
  Weight: 83.9 kg

DRUGS (10)
  1. PEG-INTERFERON A-2A (RO 25-8310) [Suspect]
     Indication: HEPATITIS C
     Dosage: DOSE AS: 120/05/MG/ML, PERMANENTLY DISCONTINUED.
     Route: 058
     Dates: start: 20081215, end: 20090318
  2. RIBAVIRIN [Suspect]
     Indication: HEPATITIS C
     Dosage: PERMANENTLY DISCONTINUED. DOSAGE FORM - PILL.
     Route: 048
     Dates: start: 20081215, end: 20090318
  3. LISINOPRIL [Concomitant]
     Dates: start: 20080206
  4. TOPROL-XL [Concomitant]
     Dates: start: 20080206, end: 20090128
  5. NORVASC [Concomitant]
     Dates: start: 20080206
  6. HYDRALAZINE HCL [Concomitant]
     Dates: start: 20080206
  7. ASPIRIN [Concomitant]
     Dates: start: 20080206
  8. NITROGLYCERIN [Concomitant]
     Dates: start: 20080206
  9. TRAZODONE HCL [Concomitant]
     Dates: start: 20081111
  10. METOPROLOL TARTRATE [Concomitant]
     Dates: start: 20090128

REACTIONS (3)
  - ESCHERICHIA SEPSIS [None]
  - LIVER FUNCTION TEST ABNORMAL [None]
  - RENAL FAILURE [None]
